FAERS Safety Report 8767975 (Version 1)
Quarter: 2012Q4

REPORT INFORMATION
  Report Type: 
  Country: US (occurrence: US)
  Receive Date: 20120904
  Receipt Date: 20120904
  Transmission Date: 20130627
  Serious: No
  Sender: FDA-Public Use
  Company Number: US-AMGEN-USASP2012051824

PATIENT
  Age: 68 Year
  Sex: Male
  Weight: 102.95 kg

DRUGS (3)
  1. ENBREL [Suspect]
     Indication: RHEUMATOID ARTHRITIS
     Dosage: 50 mg, qwk
     Dates: start: 20120702
  2. METHOTREXATE [Concomitant]
     Indication: RHEUMATOID ARTHRITIS
     Dosage: 20 mg, qwk
     Route: 048
     Dates: start: 201104
  3. PREDNISONE [Concomitant]
     Indication: RHEUMATOID ARTHRITIS
     Dosage: 4 mg, qd
     Route: 048
     Dates: start: 201104

REACTIONS (2)
  - Injection site warmth [Recovered/Resolved]
  - Injection site erythema [Recovered/Resolved]
